FAERS Safety Report 8686574 (Version 2)
Quarter: 2012Q4

REPORT INFORMATION
  Report Type: Report from Study
  Country: DE (occurrence: DE)
  Receive Date: 20120726
  Receipt Date: 20121107
  Transmission Date: 20130627
  Serious: Yes (Other)
  Sender: FDA-Public Use
  Company Number: DE-ABBOTT-12P-062-0959291-00

PATIENT
  Age: 60 Year
  Sex: Male

DRUGS (2)
  1. HUMIRA [Suspect]
     Indication: PSORIASIS
     Route: 058
     Dates: start: 2010
  2. METHOTREXATE [Concomitant]
     Indication: PSORIASIS
     Dosage: Per week
     Dates: start: 20110222

REACTIONS (2)
  - Diabetes mellitus [Not Recovered/Not Resolved]
  - Hyperuricaemia [Not Recovered/Not Resolved]
